FAERS Safety Report 14798709 (Version 1)
Quarter: 2018Q2

REPORT INFORMATION
  Report Type: Spontaneous
  Country: US (occurrence: US)
  Receive Date: 20180424
  Receipt Date: 20180424
  Transmission Date: 20180711
  Serious: No
  Sender: FDA-Public Use
  Company Number: US-TEVA-2018-US-869723

PATIENT
  Sex: Female

DRUGS (2)
  1. FLUDROCORTISONE 0.1 MG [Suspect]
     Active Substance: FLUDROCORTISONE
     Dosage: .1 MILLIGRAM DAILY; SINCE 9 YEARS
     Route: 065
     Dates: start: 2008
  2. FLUDROCORTISONE 0.1 MG [Suspect]
     Active Substance: FLUDROCORTISONE
     Indication: HYPOTENSION
     Dosage: .2 MILLIGRAM DAILY;
     Route: 065
     Dates: start: 2008

REACTIONS (5)
  - Off label use [Unknown]
  - Wrong technique in product usage process [Unknown]
  - Vertigo [Unknown]
  - Intentional product misuse [Unknown]
  - Migraine [Unknown]
